FAERS Safety Report 22749271 (Version 4)
Quarter: 2024Q1

REPORT INFORMATION
  Report Type: Spontaneous
  Country: US (occurrence: US)
  Receive Date: 20230725
  Receipt Date: 20240119
  Transmission Date: 20240409
  Serious: Yes (Other)
  Sender: FDA-Public Use
  Company Number: US-PFIZER INC-PV202300056502

PATIENT
  Age: 74 Year
  Sex: Female

DRUGS (1)
  1. IBRANCE [Suspect]
     Active Substance: PALBOCICLIB
     Indication: Breast cancer female
     Dosage: 125 MG

REACTIONS (5)
  - Femur fracture [Recovering/Resolving]
  - Mood swings [Unknown]
  - Depressed mood [Unknown]
  - Urinary incontinence [Recovering/Resolving]
  - Pain [Recovering/Resolving]
